FAERS Safety Report 12559997 (Version 1)
Quarter: 2016Q3

REPORT INFORMATION
  Report Type: Spontaneous
  Country: US (occurrence: US)
  Receive Date: 20160715
  Receipt Date: 20160715
  Transmission Date: 20161109
  Serious: No
  Sender: FDA-Public Use
  Company Number: US-JNJFOC-20160509559

PATIENT
  Age: 19 Year
  Sex: Female

DRUGS (2)
  1. MENS ROGAINE EXTRA STRENGTH [Suspect]
     Active Substance: MINOXIDIL
     Route: 061
  2. MENS ROGAINE EXTRA STRENGTH [Suspect]
     Active Substance: MINOXIDIL
     Indication: DIFFUSE ALOPECIA
     Dosage: HALF CAPFUL 3 TIMES TOTAL
     Route: 061
     Dates: end: 20160507

REACTIONS (4)
  - Product quality issue [Unknown]
  - Off label use [Unknown]
  - Product use issue [Unknown]
  - Product physical issue [Unknown]
